FAERS Safety Report 8408456-4 (Version None)
Quarter: 2012Q2

REPORT INFORMATION
  Report Type: 
  Country: None (occurrence: None)
  Receive Date: 20120604
  Receipt Date: 20120530
  Transmission Date: 20120825
  Serious: Yes (Death, Hospitalization)
  Sender: FDA-Public Use
  Company Number: JP-BAYER-2012-053503

PATIENT
  Age: 69 Year
  Sex: Male

DRUGS (1)
  1. ASPIRIN [Suspect]
     Route: 048

REACTIONS (2)
  - ARTERIAL RUPTURE [None]
  - SUBDURAL HAEMATOMA [None]
